FAERS Safety Report 5403047-1 (Version None)
Quarter: 2007Q3

REPORT INFORMATION
  Report Type: 
  Country: None (occurrence: None)
  Receive Date: 20070718
  Receipt Date: 20070503
  Transmission Date: 20080115
  Serious: Yes (Hospitalization, Other)
  Sender: FDA-Public Use
  Company Number: 2006111451

PATIENT
  Age: 72 Year
  Sex: Female
  Weight: 72.6 kg

DRUGS (2)
  1. CELEBREX [Suspect]
     Indication: ARTHRITIS
     Dosage: (200 MG, ^ONCE^ TO TWICE^
     Dates: start: 19990630
  2. VIOXX [Suspect]
     Dates: start: 19990601, end: 20040930

REACTIONS (1)
  - CEREBROVASCULAR ACCIDENT [None]
